FAERS Safety Report 18185813 (Version 3)
Quarter: 2020Q4

REPORT INFORMATION
  Report Type: Spontaneous
  Country: US (occurrence: US)
  Receive Date: 20200824
  Receipt Date: 20201109
  Transmission Date: 20210113
  Serious: Yes (Other)
  Sender: FDA-Public Use
  Company Number: US-HORMOSAN PHARMA GMBH-2020-04841

PATIENT
  Age: 38 Year
  Sex: Female
  Weight: 93.88 kg

DRUGS (3)
  1. LEVETIRACETAM TABLETS [Suspect]
     Active Substance: LEVETIRACETAM
     Dosage: 1500 MILLIGRAM, BID (ONE AND A HALF TABLET)
     Route: 048
  2. LEVETIRACETAM TABLETS [Suspect]
     Active Substance: LEVETIRACETAM
     Indication: EPILEPSY
     Dosage: 1000 MILLIGRAM, BID
     Route: 048
     Dates: start: 201911
  3. PRENATAL VITAMINS [MINERALS NOS;VITAMINS NOS] [Concomitant]
     Active Substance: MINERALS\VITAMINS
     Indication: PRODUCT USED FOR UNKNOWN INDICATION
     Dosage: UNK
     Route: 065

REACTIONS (6)
  - Confusional state [Unknown]
  - Wrong technique in product usage process [Unknown]
  - Seizure [Unknown]
  - Impaired work ability [Unknown]
  - Exposure during pregnancy [Unknown]
  - Road traffic accident [Unknown]

NARRATIVE: CASE EVENT DATE: 202002
